FAERS Safety Report 18914450 (Version 2)
Quarter: 2021Q1

REPORT INFORMATION
  Report Type: Spontaneous
  Country: US (occurrence: US)
  Receive Date: 20210218
  Receipt Date: 20210305
  Transmission Date: 20210420
  Serious: Yes (Other)
  Sender: FDA-Public Use
  Company Number: US-009507513-2102USA006659

PATIENT
  Sex: Male

DRUGS (1)
  1. KEYTRUDA [Suspect]
     Active Substance: PEMBROLIZUMAB
     Indication: HEAD AND NECK CANCER

REACTIONS (5)
  - Haematoma [Unknown]
  - Meniere^s disease [Unknown]
  - Seizure [Unknown]
  - Head injury [Unknown]
  - Drop attacks [Unknown]

NARRATIVE: CASE EVENT DATE: 202102
